FAERS Safety Report 10012024 (Version 1)
Quarter: 2014Q1

REPORT INFORMATION
  Report Type: Spontaneous
  Country: US (occurrence: US)
  Receive Date: 20140314
  Receipt Date: 20140314
  Transmission Date: 20141002
  Serious: Yes (Other)
  Sender: FDA-Public Use
  Company Number: US-TARO-2014P1002070

PATIENT
  Age: 31 Year
  Sex: Male
  Weight: 68.04 kg

DRUGS (2)
  1. PHENYTOIN SODIUM EXTENDED CAPSULES USP 100MG [Suspect]
     Indication: BRAIN INJURY
     Route: 048
     Dates: start: 20140305, end: 20140305
  2. PHENYTOIN SODIUM EXTENDED CAPSULES USP 100MG [Suspect]
     Indication: ARACHNOID CYST
     Route: 048
     Dates: start: 20140305, end: 20140305

REACTIONS (6)
  - Convulsion [Unknown]
  - Feeling hot [Unknown]
  - Glassy eyes [Not Recovered/Not Resolved]
  - Product substitution issue [Unknown]
  - Product quality issue [Unknown]
  - Drug ineffective [Unknown]
